FAERS Safety Report 9269580 (Version 2)
Quarter: 2013Q2

REPORT INFORMATION
  Report Type: Spontaneous
  Country: ES (occurrence: ES)
  Receive Date: 20130503
  Receipt Date: 20130520
  Transmission Date: 20140414
  Serious: Yes (Hospitalization)
  Sender: FDA-Public Use
  Company Number: ES-JNJFOC-20130414843

PATIENT
  Age: 72 Year
  Sex: Male

DRUGS (1)
  1. REMICADE [Suspect]
     Indication: CROHN^S DISEASE
     Dosage: 1ST DOSE
     Route: 042
     Dates: start: 2008, end: 201211

REACTIONS (5)
  - Hepatic cancer [Unknown]
  - Metastases to bone [Unknown]
  - Crohn^s disease [Unknown]
  - Weight decreased [Unknown]
  - Decreased appetite [Unknown]
